FAERS Safety Report 9851430 (Version 1)
Quarter: 2014Q1

REPORT INFORMATION
  Report Type: Spontaneous
  Country: US (occurrence: US)
  Receive Date: 20140129
  Receipt Date: 20140129
  Transmission Date: 20141002
  Serious: Yes (Hospitalization)
  Sender: FDA-Public Use
  Company Number: US-BIOGENIDEC-2014BI006808

PATIENT
  Age: 53 Year
  Sex: Female

DRUGS (1)
  1. AVONEX [Suspect]
     Indication: MULTIPLE SCLEROSIS
     Route: 030
     Dates: start: 20010411

REACTIONS (15)
  - Blood insulin increased [Unknown]
  - Multiple sclerosis relapse [Recovered/Resolved]
  - General symptom [Unknown]
  - Abdominal pain upper [Unknown]
  - Loss of consciousness [Recovered/Resolved]
  - Gait disturbance [Unknown]
  - Blood pressure abnormal [Unknown]
  - Blood cholesterol abnormal [Unknown]
  - Thyroid disorder [Unknown]
  - Milk allergy [Unknown]
  - Cough [Unknown]
  - Pain [Unknown]
  - Musculoskeletal pain [Unknown]
  - Injection site pain [Unknown]
  - Influenza like illness [Unknown]
